FAERS Safety Report 10240251 (Version 1)
Quarter: 2014Q2

REPORT INFORMATION
  Report Type: Spontaneous
  Country: DE (occurrence: DE)
  Receive Date: 20140617
  Receipt Date: 20140617
  Transmission Date: 20141212
  Serious: Yes (Hospitalization)
  Sender: FDA-Public Use
  Company Number: GXKR2014DE002267

PATIENT
  Sex: 0

DRUGS (5)
  1. PREDNISON [Suspect]
     Dosage: 7 MG, UNK
     Route: 048
  2. BELIMUMAB [Suspect]
     Indication: SYSTEMIC LUPUS ERYTHEMATOSUS
     Dosage: 800 MG, UNK
     Route: 042
     Dates: start: 20130516, end: 20140327
  3. BISOPROLOL [Concomitant]
     Dosage: 2.5 MG, UNK
     Route: 048
  4. RAMIPRIL [Concomitant]
     Dosage: 2.5 MG, UNK
     Route: 048
  5. DEKRISTOL [Concomitant]
     Dosage: 20000 IU, BIW
     Route: 048

REACTIONS (1)
  - Embolism [Recovered/Resolved]
